FAERS Safety Report 16933869 (Version 3)
Quarter: 2020Q1

REPORT INFORMATION
  Report Type: Spontaneous
  Country: US (occurrence: US)
  Receive Date: 20191018
  Receipt Date: 20200308
  Transmission Date: 20200409
  Serious: No
  Sender: FDA-Public Use
  Company Number: US-TEVA-2019-US-1124771

PATIENT
  Sex: Male

DRUGS (5)
  1. GABAPENTIN. [Concomitant]
     Active Substance: GABAPENTIN
  2. BUPRENORPHINE TEVA [Suspect]
     Active Substance: BUPRENORPHINE
     Indication: BACK PAIN
     Dosage: 15 MCG / HR
     Route: 062
     Dates: start: 2013
  3. BUPRENORPHINE TEVA [Suspect]
     Active Substance: BUPRENORPHINE
     Dosage: 1 PATCH PER 7 DAYS
     Route: 057
     Dates: start: 20190518
  4. BUPRENORPHINE. [Concomitant]
     Active Substance: BUPRENORPHINE
  5. HYDROCODONE [Concomitant]
     Active Substance: HYDROCODONE
     Dosage: 10-325MG

REACTIONS (7)
  - Panic attack [Unknown]
  - Anxiety [Unknown]
  - Tongue discomfort [Unknown]
  - Oral discomfort [Unknown]
  - Adverse event [Unknown]
  - Product adhesion issue [Unknown]
  - Back pain [Unknown]
